FAERS Safety Report 19912498 (Version 1)
Quarter: 2021Q4

REPORT INFORMATION
  Report Type: Spontaneous
  Country: FR (occurrence: FR)
  Receive Date: 20211004
  Receipt Date: 20211004
  Transmission Date: 20220303
  Serious: Yes (Hospitalization)
  Sender: FDA-Public Use
  Company Number: None

PATIENT
  Age: 70 Year
  Sex: Male
  Weight: 67 kg

DRUGS (6)
  1. ESCITALOPRAM [Suspect]
     Active Substance: ESCITALOPRAM OXALATE
     Indication: Depression
     Dosage: 5 MILLIGRAM, QD ?(5 MG IN THE EVENING)
     Route: 048
     Dates: start: 20210423, end: 20210506
  2. ESCITALOPRAM [Suspect]
     Active Substance: ESCITALOPRAM OXALATE
     Dosage: 10 MILLIGRAM, QD (10 MG IN THE EVENING)
     Route: 048
     Dates: start: 20210507, end: 20210512
  3. OXAZEPAM [Suspect]
     Active Substance: OXAZEPAM
     Indication: Anxiety
     Dosage: 10 MILLIGRAM, QD (5MG IN MORNING, 5MG IN EVENING)
     Route: 048
     Dates: start: 20210331, end: 20210422
  4. OXAZEPAM [Suspect]
     Active Substance: OXAZEPAM
     Dosage: 5 MILLIGRAM, QD (5 MG, IN EVENING)
     Route: 048
     Dates: start: 20210423
  5. COMIRNATY [Suspect]
     Active Substance: TOZINAMERAN
     Indication: COVID-19 immunisation
     Dosage: 1 DOSAGE FORM/D?
     Route: 030
     Dates: start: 20210512
  6. FENOFIBRATE [Concomitant]
     Active Substance: FENOFIBRATE
     Dosage: UNK

REACTIONS (2)
  - Condition aggravated [Recovering/Resolving]
  - Confusional state [Recovering/Resolving]

NARRATIVE: CASE EVENT DATE: 20210512
